FAERS Safety Report 5369780-5 (Version None)
Quarter: 2007Q2

REPORT INFORMATION
  Report Type: 
  Country: None (occurrence: None)
  Receive Date: 20070625
  Receipt Date: 20070619
  Transmission Date: 20071010
  Serious: Yes (Hospitalization)
  Sender: FDA-Public Use
  Company Number: US-ABBOTT-07P-163-0372006-00

PATIENT
  Sex: Female
  Weight: 101.4 kg

DRUGS (3)
  1. HYDROMORPHONE HCL [Suspect]
     Indication: BONE PAIN
     Route: 048
     Dates: start: 20070501, end: 20070521
  2. BLINDED TRIAL MEDICATION [Suspect]
     Indication: BREAST CANCER METASTATIC
     Route: 048
     Dates: start: 20050913, end: 20070423
  3. LETROZOLE [Suspect]
     Indication: DRUG USE FOR UNKNOWN INDICATION
     Route: 048
     Dates: start: 20050913, end: 20070423

REACTIONS (2)
  - CONFUSIONAL STATE [None]
  - PAIN [None]
